FAERS Safety Report 10613028 (Version 2)
Quarter: 2015Q3

REPORT INFORMATION
  Report Type: Report from Study
  Country: BR (occurrence: BR)
  Receive Date: 20141127
  Receipt Date: 20150707
  Transmission Date: 20151125
  Serious: Yes (Other)
  Sender: FDA-Public Use
  Company Number: PHHY2014BR155594

PATIENT
  Sex: Female
  Weight: 63 kg

DRUGS (2)
  1. ACLASTA [Suspect]
     Active Substance: ZOLEDRONIC ACID
     Indication: OSTEOPOROSIS
     Dosage: 5 MG, 1 APPLICATION PER YEAR
     Route: 042
  2. DIOVAN [Concomitant]
     Active Substance: VALSARTAN
     Indication: HYPERTENSION
     Dosage: 1 DF, QD
     Route: 065
     Dates: start: 2012

REACTIONS (10)
  - Spinal fracture [Not Recovered/Not Resolved]
  - Pain [Unknown]
  - Injection site pain [Not Recovered/Not Resolved]
  - Joint stiffness [Not Recovered/Not Resolved]
  - Osteoporosis [Unknown]
  - Fall [Not Recovered/Not Resolved]
  - Malaise [Unknown]
  - Abasia [Unknown]
  - Condition aggravated [Unknown]
  - Asthenia [Unknown]
